FAERS Safety Report 25530658 (Version 1)
Quarter: 2025Q3

REPORT INFORMATION
  Report Type: Spontaneous
  Country: KR (occurrence: KR)
  Receive Date: 20250708
  Receipt Date: 20250708
  Transmission Date: 20251020
  Serious: Yes (Other)
  Sender: PFIZER
  Company Number: KR-PFIZER INC-202500132861

PATIENT
  Sex: Female

DRUGS (5)
  1. VINCRISTINE SULFATE [Suspect]
     Active Substance: VINCRISTINE SULFATE
     Indication: Retinoblastoma
     Dosage: 0.4 MG, 1X/DAY
     Dates: start: 20241210, end: 20241210
  2. CARBOPLATIN [Suspect]
     Active Substance: CARBOPLATIN
     Indication: Retinoblastoma
     Dosage: 150 MG, 1X/DAY
     Dates: start: 20241212, end: 20241212
  3. DOXORUBICIN HYDROCHLORIDE [Suspect]
     Active Substance: DOXORUBICIN HYDROCHLORIDE
     Indication: Retinoblastoma
     Dosage: 9 MG, 1X/DAY
     Dates: start: 20241210, end: 20241210
  4. CYCLOPHOSPHAMIDE [Suspect]
     Active Substance: CYCLOPHOSPHAMIDE
     Indication: Retinoblastoma
     Dosage: 290 MG, 1X/DAY
     Dates: start: 20241211, end: 20241211
  5. ETOPOSIDE [Suspect]
     Active Substance: ETOPOSIDE
     Indication: Retinoblastoma
     Dosage: 32 MG, 1X/DAY
     Dates: start: 20241210, end: 20241210

REACTIONS (4)
  - Leukopenia [Recovered/Resolved]
  - Thrombocytopenia [Recovered/Resolved]
  - Febrile neutropenia [Recovered/Resolved]
  - Anaemia [Recovered/Resolved]

NARRATIVE: CASE EVENT DATE: 20241217
